FAERS Safety Report 18980702 (Version 1)
Quarter: 2021Q1

REPORT INFORMATION
  Report Type: Spontaneous
  Country: AR (occurrence: AR)
  Receive Date: 20210308
  Receipt Date: 20210308
  Transmission Date: 20210420
  Serious: Yes (Other)
  Sender: FDA-Public Use
  Company Number: AR-PFIZER INC-2021223912

PATIENT
  Age: 83 Year
  Sex: Female

DRUGS (1)
  1. SUTENT [Suspect]
     Active Substance: SUNITINIB MALATE
     Indication: RENAL CANCER
     Dosage: UNK, DAILY
     Dates: start: 20200217, end: 20200828

REACTIONS (2)
  - Hip fracture [Unknown]
  - Skeletal dysplasia [Unknown]

NARRATIVE: CASE EVENT DATE: 202102
